FAERS Safety Report 21748195 (Version 1)
Quarter: 2022Q4

REPORT INFORMATION
  Report Type: Spontaneous
  Country: CN (occurrence: CN)
  Receive Date: 20221219
  Receipt Date: 20221219
  Transmission Date: 20230112
  Serious: Yes (Hospitalization)
  Sender: FDA-Public Use
  Company Number: CN-009507513-2212CHN006203

PATIENT
  Age: 30 Year
  Sex: Female
  Weight: 61.5 kg

DRUGS (3)
  1. NOXAFIL [Suspect]
     Active Substance: POSACONAZOLE
     Indication: Anti-infective therapy
     Dosage: 5 MG [ALSO REPORTED AS 5ML], 3 TIMES/DAY
     Route: 048
     Dates: start: 20221009, end: 20221020
  2. VANCOCIN [Suspect]
     Active Substance: VANCOMYCIN HYDROCHLORIDE
     Indication: Anti-infective therapy
     Dosage: 10 MG, TWICE/DAY
     Route: 048
     Dates: start: 20221009, end: 20221018
  3. MAGNESIUM ISOGLYCYRRHIZINATE [Concomitant]
     Active Substance: MAGNESIUM ISOGLYCYRRHIZINATE
     Indication: Liver disorder
     Dosage: 100 MG, TWICE/DAY
     Route: 048
     Dates: start: 20221002, end: 20221018

REACTIONS (3)
  - Rash pruritic [Recovering/Resolving]
  - Rash maculo-papular [Recovering/Resolving]
  - Purpura [Recovering/Resolving]

NARRATIVE: CASE EVENT DATE: 20221018
